FAERS Safety Report 13278682 (Version 1)
Quarter: 2017Q1

REPORT INFORMATION
  Report Type: Spontaneous
  Country: US (occurrence: US)
  Receive Date: 20170228
  Receipt Date: 20170228
  Transmission Date: 20170428
  Serious: Yes (Hospitalization)
  Sender: FDA-Public Use
  Company Number: US-TEVA-743172USA

PATIENT
  Sex: Male

DRUGS (5)
  1. DIPHENHYDRAMINE. [Suspect]
     Active Substance: DIPHENHYDRAMINE
     Route: 065
  2. FENTANYL. [Suspect]
     Active Substance: FENTANYL
     Route: 065
  3. NALOXONE [Suspect]
     Active Substance: NALOXONE
     Route: 065
  4. XANAX [Suspect]
     Active Substance: ALPRAZOLAM
     Route: 065
  5. SERTRALINE [Suspect]
     Active Substance: SERTRALINE HYDROCHLORIDE
     Route: 065

REACTIONS (4)
  - Drug abuse [Unknown]
  - Counterfeit drug administered [Unknown]
  - Depressed level of consciousness [Unknown]
  - Respiratory depression [Unknown]
